FAERS Safety Report 19573860 (Version 2)
Quarter: 2021Q3

REPORT INFORMATION
  Report Type: Spontaneous
  Country: US (occurrence: US)
  Receive Date: 20210718
  Receipt Date: 20210822
  Transmission Date: 20211014
  Serious: No
  Sender: FDA-Public Use
  Company Number: US-AMGEN-USASP2021106861

PATIENT
  Age: 51 Year
  Sex: Male

DRUGS (3)
  1. COVID?19 VACCINE [Concomitant]
     Dosage: UNK
     Dates: start: 2021
  2. OTEZLA [Suspect]
     Active Substance: APREMILAST
     Indication: PSORIASIS
     Dosage: UNK (10, 20, 30 MILLIGRAM STARTER PACK)
     Route: 065
     Dates: start: 202106, end: 2021
  3. OTEZLA [Suspect]
     Active Substance: APREMILAST
     Dosage: UNK (10, 20, 30 MILLIGRAM STARTER PACK)
     Route: 065
     Dates: start: 2021, end: 2021

REACTIONS (3)
  - Nausea [Not Recovered/Not Resolved]
  - Motion sickness [Not Recovered/Not Resolved]
  - Dizziness [Not Recovered/Not Resolved]

NARRATIVE: CASE EVENT DATE: 2021
